FAERS Safety Report 13297292 (Version 1)
Quarter: 2017Q1

REPORT INFORMATION
  Report Type: Spontaneous
  Country: US (occurrence: US)
  Receive Date: 20170304
  Receipt Date: 20170304
  Transmission Date: 20170428
  Serious: Yes (Other)
  Sender: FDA-Public Use
  Company Number: None

PATIENT
  Age: 25 Year
  Sex: Male

DRUGS (1)
  1. DOXY [Suspect]
     Active Substance: DOXYCYCLINE
     Indication: ACNE
     Route: 048

REACTIONS (1)
  - Irritable bowel syndrome [None]

NARRATIVE: CASE EVENT DATE: 20140501
